FAERS Safety Report 9964462 (Version 1)
Quarter: 2014Q1

REPORT INFORMATION
  Report Type: Spontaneous
  Country: CO (occurrence: CO)
  Receive Date: 20140305
  Receipt Date: 20140305
  Transmission Date: 20141002
  Serious: Yes (Hospitalization)
  Sender: FDA-Public Use
  Company Number: CO-PFIZER INC-2014063325

PATIENT
  Age: 48 Year
  Sex: Female

DRUGS (1)
  1. LYRICA [Suspect]
     Indication: RHEUMATOID ARTHRITIS
     Dosage: 150 MG, 1X/DAY
     Route: 048
     Dates: start: 201307

REACTIONS (3)
  - Blood triglycerides increased [Unknown]
  - Platelet count increased [Unknown]
  - Lymphocyte count increased [Unknown]
